FAERS Safety Report 9321146 (Version 1)
Quarter: 2013Q2

REPORT INFORMATION
  Report Type: Spontaneous
  Country: FR (occurrence: FR)
  Receive Date: 20130531
  Receipt Date: 20130531
  Transmission Date: 20140414
  Serious: Yes (Other)
  Sender: FDA-Public Use
  Company Number: FR-ROCHE-1230661

PATIENT
  Age: 58 Year
  Sex: Male

DRUGS (2)
  1. ROCEPHINE [Suspect]
     Indication: PNEUMONIA
     Route: 042
     Dates: start: 20130212, end: 20130307
  2. TAVANIC [Suspect]
     Indication: PNEUMONIA
     Route: 065
     Dates: start: 20130212

REACTIONS (2)
  - Hyperlipasaemia [Recovering/Resolving]
  - Hepatic enzyme increased [Recovering/Resolving]
